FAERS Safety Report 8883055 (Version 1)
Quarter: 2012Q4

REPORT INFORMATION
  Report Type: 
  Country: US (occurrence: US)
  Receive Date: 20121102
  Receipt Date: 20121102
  Transmission Date: 20130627
  Serious: Yes (Other)
  Sender: FDA-Public Use
  Company Number: US-ABBOTT-12P-163-0917227-00

PATIENT
  Sex: Female
  Weight: 83.99 kg

DRUGS (2)
  1. BIAXIN [Suspect]
     Indication: BRONCHITIS
     Dates: start: 1994, end: 1994
  2. TAVIST-D [Suspect]
     Indication: NASOPHARYNGITIS
     Dates: start: 1994, end: 1994

REACTIONS (4)
  - Drug hypersensitivity [Recovered/Resolved]
  - Allergic oedema [Recovered/Resolved]
  - Anaphylactic reaction [Recovered/Resolved]
  - Allergic respiratory symptom [Recovered/Resolved]
